FAERS Safety Report 16416288 (Version 2)
Quarter: 2019Q2

REPORT INFORMATION
  Report Type: Spontaneous
  Country: US (occurrence: US)
  Receive Date: 20190611
  Receipt Date: 20190612
  Transmission Date: 20190711
  Serious: Yes (Death, Life-Threatening, Hospitalization, Other)
  Sender: FDA-Public Use
  Company Number: US-AMAG PHARMACEUTICALS, INC.-AMAG201903049

PATIENT
  Age: 85 Year
  Sex: Male

DRUGS (1)
  1. FERAHEME [Suspect]
     Active Substance: FERUMOXYTOL NON-STOICHIOMETRIC MAGNETITE
     Indication: NUCLEAR MAGNETIC RESONANCE IMAGING

REACTIONS (8)
  - Ventricular fibrillation [Fatal]
  - Cardiac arrest [Fatal]
  - Off label use [Unknown]
  - Anaphylactic reaction [Fatal]
  - Tachycardia [Unknown]
  - Shock [Fatal]
  - Hypotension [Unknown]
  - Hypoxic-ischaemic encephalopathy [Fatal]
